FAERS Safety Report 17681744 (Version 1)
Quarter: 2020Q2

REPORT INFORMATION
  Report Type: Report from Study
  Country: CO (occurrence: CO)
  Receive Date: 20200417
  Receipt Date: 20200417
  Transmission Date: 20200714
  Serious: Yes (Death, Life-Threatening, Hospitalization, Other)
  Sender: FDA-Public Use
  Company Number: CO-BRISTOL-MYERS SQUIBB COMPANY-BMS-2020-026045

PATIENT
  Age: 60 Year
  Sex: Male

DRUGS (1)
  1. NIVOLUMAB [Suspect]
     Active Substance: NIVOLUMAB
     Indication: MALIGNANT MELANOMA
     Dosage: 270 MILLIGRAM, Q2WK
     Route: 042
     Dates: start: 20190709

REACTIONS (7)
  - Metastases to lung [Unknown]
  - Metastases to central nervous system [Unknown]
  - Urinary retention [Recovered/Resolved]
  - Hypertension [Unknown]
  - Cardio-respiratory arrest [Fatal]
  - Cardiac failure [Unknown]
  - Dyspnoea [Unknown]

NARRATIVE: CASE EVENT DATE: 20200318
